FAERS Safety Report 9314797 (Version 1)
Quarter: 2013Q2

REPORT INFORMATION
  Report Type: Spontaneous
  Country: JP (occurrence: JP)
  Receive Date: 20130529
  Receipt Date: 20130529
  Transmission Date: 20140414
  Serious: Yes (Other)
  Sender: FDA-Public Use
  Company Number: JP-PFIZER INC-2013157713

PATIENT
  Age: 13 Year
  Sex: Female
  Weight: 30.9 kg

DRUGS (6)
  1. ETOPOSIDE [Suspect]
     Indication: ACUTE MYELOID LEUKAEMIA
     Dosage: 100 MG/M2 X3, CYCLIC
  2. ETOPOSIDE [Suspect]
     Indication: CONGENITAL APLASTIC ANAEMIA
  3. IDAMYCIN [Suspect]
     Indication: ACUTE MYELOID LEUKAEMIA
     Dosage: 10 MG/M2 X1, CYCLIC
  4. IDAMYCIN [Suspect]
     Indication: CONGENITAL APLASTIC ANAEMIA
  5. ARA-C [Suspect]
     Indication: ACUTE MYELOID LEUKAEMIA
     Dosage: 3000 MG/M2 X6, CYCLIC
  6. ARA-C [Suspect]
     Indication: CONGENITAL APLASTIC ANAEMIA
     Dosage: 3000 MG/M2 X4, CYCLIC

REACTIONS (2)
  - Febrile neutropenia [Unknown]
  - Stomatitis [Unknown]
